FAERS Safety Report 25332396 (Version 1)
Quarter: 2025Q2

REPORT INFORMATION
  Report Type: Spontaneous
  Country: DE (occurrence: DE)
  Receive Date: 20250519
  Receipt Date: 20250519
  Transmission Date: 20250716
  Serious: Yes (Other)
  Sender: SUNOVION
  Company Number: DE-RICHTER-2025-GR-005318

PATIENT

DRUGS (1)
  1. ESTRADIOL\NORETHINDRONE ACETATE\RELUGOLIX [Suspect]
     Active Substance: ESTRADIOL\NORETHINDRONE ACETATE\RELUGOLIX
     Indication: Uterine leiomyoma
     Route: 048
     Dates: start: 202502, end: 20250505

REACTIONS (3)
  - Renal function test abnormal [Unknown]
  - Migraine with aura [Unknown]
  - Alopecia [Unknown]

NARRATIVE: CASE EVENT DATE: 20250301
